FAERS Safety Report 9630302 (Version 3)
Quarter: 2013Q4

REPORT INFORMATION
  Report Type: Spontaneous
  Country: PL (occurrence: PL)
  Receive Date: 20131018
  Receipt Date: 20131121
  Transmission Date: 20140711
  Serious: Yes (Other)
  Sender: FDA-Public Use
  Company Number: PL-AMGEN-POLSP2013071912

PATIENT
  Age: 86 Year
  Sex: Male
  Weight: 81 kg

DRUGS (4)
  1. ARANESP [Suspect]
     Indication: ANAEMIA
     Dosage: 30 MUG, QMO
     Route: 058
     Dates: start: 20080828
  2. XARTAN                             /01121601/ [Concomitant]
     Indication: HYPERTENSION
     Dosage: 50 MG, QD
     Route: 048
     Dates: start: 200707, end: 20110529
  3. NITRENDYPINA [Concomitant]
     Indication: HYPERTENSION
     Dosage: 10 MG, BID
     Route: 048
  4. CONCOR COR [Concomitant]
     Indication: HYPERTENSION
     Dosage: 2.5 MG, QD
     Route: 048
     Dates: start: 20081218, end: 200904

REACTIONS (3)
  - Transient ischaemic attack [Unknown]
  - Aphasia [Recovered/Resolved]
  - Dysaesthesia [Recovered/Resolved]
